FAERS Safety Report 8345912-1 (Version None)
Quarter: 2012Q2

REPORT INFORMATION
  Report Type: 
  Country: None (occurrence: None)
  Receive Date: 20120509
  Receipt Date: 20120501
  Transmission Date: 20120825
  Serious: No
  Sender: FDA-Public Use
  Company Number: US-BIOGENIDEC-2012BI015101

PATIENT
  Age: 58 Year
  Sex: Female

DRUGS (4)
  1. AVONEX [Suspect]
     Indication: MULTIPLE SCLEROSIS
     Route: 030
     Dates: start: 20120127
  2. AVONEX [Suspect]
     Route: 030
     Dates: start: 20120201
  3. AVONEX [Suspect]
     Route: 030
     Dates: start: 20120201
  4. AVONEX [Suspect]
     Route: 030
     Dates: start: 20120201

REACTIONS (1)
  - VISUAL IMPAIRMENT [None]
